FAERS Safety Report 16071904 (Version 1)
Quarter: 2019Q1

REPORT INFORMATION
  Report Type: Spontaneous
  Country: US (occurrence: US)
  Receive Date: 20190213
  Receipt Date: 20190213
  Transmission Date: 20190418
  Serious: No
  Sender: FDA-Public Use
  Company Number: None

PATIENT
  Age: 27 Year
  Sex: Female
  Weight: 113.4 kg

DRUGS (3)
  1. CIMZIA [Suspect]
     Active Substance: CERTOLIZUMAB PEGOL
     Indication: PSORIATIC ARTHROPATHY
     Dosage: OTHER FREQUENCY:WEEKS 0,2 AND 4;?
     Route: 058
     Dates: start: 201811
  2. CIMZIA [Suspect]
     Active Substance: CERTOLIZUMAB PEGOL
     Indication: RHEUMATOID ARTHRITIS
  3. CIMZIA [Suspect]
     Active Substance: CERTOLIZUMAB PEGOL
     Indication: RHEUMATOID ARTHRITIS
     Dosage: OTHER FREQUENCY:WEEKS 0,2 AND 4;?
     Route: 058
     Dates: start: 201811

REACTIONS (4)
  - Nausea [None]
  - Gastroenteritis viral [None]
  - Vomiting [None]
  - Diarrhoea [None]
